FAERS Safety Report 9343290 (Version 3)
Quarter: 2013Q3

REPORT INFORMATION
  Report Type: Spontaneous
  Country: US (occurrence: US)
  Receive Date: 20130612
  Receipt Date: 20130904
  Transmission Date: 20140515
  Serious: No
  Sender: FDA-Public Use
  Company Number: US-009507513-1306USA003675

PATIENT
  Age: 23 Year
  Sex: Female
  Weight: 54.9 kg

DRUGS (3)
  1. IMPLANON [Suspect]
     Indication: CONTRACEPTION
     Dosage: 1 ROD, UNK
     Route: 059
     Dates: start: 20120625, end: 20130502
  2. FLUCONAZOLE [Concomitant]
  3. ACETAMINOPHEN (+) OXYCODONE HYDROCHLORIDE [Concomitant]

REACTIONS (7)
  - Vaginal haemorrhage [Recovering/Resolving]
  - Migraine [Not Recovered/Not Resolved]
  - Menorrhagia [Recovered/Resolved]
  - Metrorrhagia [Recovering/Resolving]
  - Dysmenorrhoea [Recovering/Resolving]
  - Device breakage [Unknown]
  - Device deployment issue [Unknown]
